FAERS Safety Report 5782693-X (Version None)
Quarter: 2008Q2

REPORT INFORMATION
  Report Type: 
  Country: None (occurrence: None)
  Receive Date: 20080619
  Receipt Date: 20080617
  Transmission Date: 20081010
  Serious: Yes (Hospitalization, Other)
  Sender: FDA-Public Use
  Company Number: 2008SP011827

PATIENT
  Age: 78 Year
  Sex: Female

DRUGS (2)
  1. PROVENTIL-HFA [Suspect]
     Indication: ASTHMA
     Dosage: PO
     Route: 048
  2. PROVENTIL-HFA [Suspect]

REACTIONS (3)
  - DRUG INEFFECTIVE [None]
  - FALL [None]
  - PHARMACEUTICAL PRODUCT COMPLAINT [None]
